FAERS Safety Report 6557896-7 (Version None)
Quarter: 2010Q1

REPORT INFORMATION
  Report Type: 
  Country: None (occurrence: None)
  Receive Date: 20100125
  Receipt Date: 20100105
  Transmission Date: 20100710
  Serious: No
  Sender: FDA-Public Use
  Company Number: 2010-00005

PATIENT
  Age: 55 Year
  Sex: Male
  Weight: 86.1834 kg

DRUGS (5)
  1. COLD REMEDY ORAL MIST [Suspect]
     Dosage: ONE DOSE, END OF NOV, 2009-1 DOSE
  2. FLOMAX [Concomitant]
  3. CELEXA [Concomitant]
  4. GLUCOSAMINE [Concomitant]
  5. MULTI-VITAMIN [Concomitant]

REACTIONS (1)
  - AGEUSIA [None]
